FAERS Safety Report 9761074 (Version 1)
Quarter: 2013Q4

REPORT INFORMATION
  Report Type: Spontaneous
  Country: US (occurrence: None)
  Receive Date: 20131212
  Receipt Date: 20131212
  Transmission Date: 20140711
  Serious: Yes (Other)
  Sender: FDA-Public Use
  Company Number: 2013-US-003687

PATIENT
  Age: 54 Year
  Sex: Female
  Weight: 117.9 kg

DRUGS (6)
  1. XYREM (SODIUM OXYBATE) ORAL SOLUTION, 500MG/ML [Suspect]
     Indication: NARCOLEPSY
     Route: 048
     Dates: start: 20130125
  2. XYREM (SODIUM OXYBATE) ORAL SOLUTION, 500MG/ML [Suspect]
     Indication: SOMNOLENCE
     Route: 048
     Dates: start: 20130125
  3. ZICAM [Suspect]
     Indication: NASAL CONGESTION
     Dosage: NASAL
  4. ZICAM [Suspect]
     Indication: NASAL CONGESTION
     Dosage: NASAL
  5. FENOFIBRATE (FENOFIBRATE) (FENOFIBRATE) [Concomitant]
  6. KLOR-CON (POTASSIUM CHLORIDE) [Concomitant]

REACTIONS (4)
  - Sleep apnoea syndrome [None]
  - Nasal discomfort [None]
  - Blood cholesterol increased [None]
  - Allergy to animal [None]
